FAERS Safety Report 10029171 (Version 2)
Quarter: 2014Q1

REPORT INFORMATION
  Report Type: Spontaneous
  Country: US (occurrence: US)
  Receive Date: 20140321
  Receipt Date: 20140321
  Transmission Date: 20141002
  Serious: Yes (Hospitalization, Other)
  Sender: FDA-Public Use
  Company Number: US-AMGEN-USASP2013078595

PATIENT
  Age: 53 Year
  Sex: Male

DRUGS (1)
  1. ENBREL [Suspect]
     Indication: RHEUMATOID ARTHRITIS
     Dosage: 50 MG, QWK
     Route: 065
     Dates: start: 20130206, end: 20130720

REACTIONS (6)
  - Diverticulitis [Not Recovered/Not Resolved]
  - Fistula [Not Recovered/Not Resolved]
  - Colon operation [Not Recovered/Not Resolved]
  - Incision site pain [Not Recovered/Not Resolved]
  - Cough [Not Recovered/Not Resolved]
  - Bladder cancer [Not Recovered/Not Resolved]
